FAERS Safety Report 5881670-8 (Version None)
Quarter: 2008Q3

REPORT INFORMATION
  Report Type: 
  Country: None (occurrence: None)
  Receive Date: 20080912
  Receipt Date: 20080709
  Transmission Date: 20090109
  Serious: No
  Sender: FDA-Public Use
  Company Number: US-ABBOTT-08P-163-0461699-00

PATIENT
  Sex: Female
  Weight: 104.54 kg

DRUGS (8)
  1. HUMIRA [Suspect]
     Indication: ARTHRITIS
     Route: 058
     Dates: start: 20060101, end: 20080701
  2. DICLOFENAC DIETHYLAMINE [Concomitant]
     Indication: ARTHRITIS
  3. RANITIDINE [Concomitant]
     Indication: GASTROINTESTINAL DISORDER
  4. DEXTROPROPOXYPHENE HYDROCHLORIDE [Concomitant]
     Indication: PAIN
  5. DIAZEPAM [Concomitant]
     Indication: DRUG USE FOR UNKNOWN INDICATION
     Dosage: EVERY HS
  6. METOPROLOL TARTRATE [Concomitant]
     Indication: HYPERTENSION
  7. GABAPENTIN [Concomitant]
     Indication: DRUG USE FOR UNKNOWN INDICATION
     Dosage: AT HS
  8. TIZANIDINE HYDROCHLORIDE [Concomitant]
     Indication: MUSCLE RELAXANT THERAPY

REACTIONS (5)
  - CHILLS [None]
  - FATIGUE [None]
  - INJECTION SITE PAIN [None]
  - PNEUMONIA [None]
  - RESPIRATORY TRACT INFECTION [None]
